FAERS Safety Report 11838406 (Version 2)
Quarter: 2015Q4

REPORT INFORMATION
  Report Type: Spontaneous
  Country: JP (occurrence: JP)
  Receive Date: 20151215
  Receipt Date: 20151224
  Transmission Date: 20160305
  Serious: Yes (Death, Hospitalization, Other)
  Sender: FDA-Public Use
  Company Number: JP-ASTRAZENECA-2015SF02118

PATIENT
  Age: 80 Year
  Sex: Male
  Weight: 105 kg

DRUGS (12)
  1. URINORM [Suspect]
     Active Substance: BENZBROMARONE
     Indication: HYPERURICAEMIA
     Route: 048
  2. THEOLONG [Suspect]
     Active Substance: THEOPHYLLINE ANHYDROUS
     Indication: CHRONIC OBSTRUCTIVE PULMONARY DISEASE
     Route: 048
  3. BYDUREON [Suspect]
     Active Substance: EXENATIDE
     Indication: TYPE 2 DIABETES MELLITUS
     Route: 058
     Dates: start: 20150602, end: 201507
  4. DIART [Suspect]
     Active Substance: AZOSEMIDE
     Indication: CARDIAC FAILURE
     Route: 048
  5. LANIRAPID [Suspect]
     Active Substance: METILDIGOXIN
     Indication: CARDIAC FAILURE
     Route: 048
  6. BYDUREON [Suspect]
     Active Substance: EXENATIDE
     Indication: DECREASED APPETITE
     Route: 058
     Dates: start: 20150602, end: 201507
  7. PLAVIX [Suspect]
     Active Substance: CLOPIDOGREL BISULFATE
     Indication: PERIPHERAL ARTERIAL OCCLUSIVE DISEASE
     Route: 048
  8. STOMACHIC [Suspect]
     Active Substance: HERBALS\SODIUM BICARBONATE
     Indication: GASTRITIS
     Route: 048
  9. GLIMICRON [Suspect]
     Active Substance: GLICLAZIDE
     Indication: TYPE 2 DIABETES MELLITUS
     Route: 048
  10. RENIVACE [Suspect]
     Active Substance: ENALAPRIL
     Indication: HYPERTENSION
     Route: 048
     Dates: start: 20150101
  11. HOKUNALIN TAPE [Suspect]
     Active Substance: TULOBUTEROL
     Indication: CHRONIC OBSTRUCTIVE PULMONARY DISEASE
     Route: 062
  12. SIGMART [Suspect]
     Active Substance: NICORANDIL
     Indication: ANGINA PECTORIS
     Route: 048

REACTIONS (8)
  - Malaise [Unknown]
  - Dehydration [Fatal]
  - Weight decreased [Unknown]
  - Decreased appetite [Recovering/Resolving]
  - Nausea [Unknown]
  - Hypokinesia [Unknown]
  - Rectal cancer [Unknown]
  - Genital erosion [Unknown]

NARRATIVE: CASE EVENT DATE: 2015
